FAERS Safety Report 11595860 (Version 2)
Quarter: 2015Q4

REPORT INFORMATION
  Report Type: Spontaneous
  Country: UY (occurrence: UY)
  Receive Date: 20151006
  Receipt Date: 20151102
  Transmission Date: 20160304
  Serious: Yes (Hospitalization, Other)
  Sender: FDA-Public Use
  Company Number: UY-SA-2015SA151015

PATIENT
  Age: 34 Year
  Sex: Male

DRUGS (6)
  1. FABRAZYME [Suspect]
     Active Substance: AGALSIDASE BETA
     Indication: FABRY^S DISEASE
     Route: 041
     Dates: start: 201204
  2. ERYTHROPOIETIN [Concomitant]
     Active Substance: ERYTHROPOIETIN
  3. IRON SUCROSE [Concomitant]
     Active Substance: IRON SUCROSE
     Dosage: EVERY 15 DAYS
  4. VITAMIN B COMPLEX [Concomitant]
     Active Substance: CYANOCOBALAMIN\DEXPANTHENOL\NIACINAMIDE\PYRIDOXINE HYDROCHLORIDE\RIBOFLAVIN 5^-PHOSPHATE SODIUM\THIAMINE HYDROCHLORIDE\VITAMIN B COMPLEX
  5. CALCIUM CARBONATE. [Concomitant]
     Active Substance: CALCIUM CARBONATE
  6. PREGABALIN. [Concomitant]
     Active Substance: PREGABALIN

REACTIONS (6)
  - Communication disorder [Recovering/Resolving]
  - Malaise [Unknown]
  - Seizure [Recovered/Resolved]
  - Pulmonary oedema [Unknown]
  - Mobility decreased [Recovered/Resolved]
  - Cerebrovascular accident [Unknown]

NARRATIVE: CASE EVENT DATE: 20150928
